FAERS Safety Report 8097879-1 (Version None)
Quarter: 2012Q1

REPORT INFORMATION
  Report Type: 
  Country: None (occurrence: None)
  Receive Date: 20120128
  Receipt Date: 20110815
  Transmission Date: 20120608
  Serious: No
  Sender: FDA-Public Use
  Company Number: US-ABBOTT-11P-163-0846693-00

PATIENT
  Age: 47 Year
  Sex: Female

DRUGS (2)
  1. LUVOX [Concomitant]
     Indication: PRODUCT USED FOR UNKNOWN INDICATION
  2. HUMIRA [Suspect]
     Indication: PSORIATIC ARTHROPATHY
     Dates: start: 20050101

REACTIONS (4)
  - RASH PRURITIC [None]
  - SKIN BURNING SENSATION [None]
  - RASH [None]
  - DERMATITIS [None]
